FAERS Safety Report 8413718-0 (Version None)
Quarter: 2012Q2

REPORT INFORMATION
  Report Type: 
  Country: None (occurrence: None)
  Receive Date: 20120605
  Receipt Date: 20120530
  Transmission Date: 20120825
  Serious: Yes (Other)
  Sender: FDA-Public Use
  Company Number: US-PFIZER INC-2012102199

PATIENT
  Sex: Female
  Weight: 63.492 kg

DRUGS (2)
  1. PRISTIQ [Suspect]
     Indication: DEPRESSION
     Dosage: UNK
     Dates: start: 20091201
  2. FENTANYL [Concomitant]
     Indication: BACK DISORDER
     Dosage: UNK

REACTIONS (1)
  - WRIST FRACTURE [None]
